FAERS Safety Report 9474859 (Version 1)
Quarter: 2013Q3

REPORT INFORMATION
  Report Type: Spontaneous
  Country: GB (occurrence: GB)
  Receive Date: 20130823
  Receipt Date: 20130823
  Transmission Date: 20140515
  Serious: Yes (Other)
  Sender: FDA-Public Use
  Company Number: GB-ASTRAZENECA-2013SE63879

PATIENT
  Age: 46 Year
  Sex: Female
  Weight: 97.1 kg

DRUGS (6)
  1. OMEPRAZOLE [Suspect]
     Route: 048
     Dates: start: 20130806
  2. AMOXICILLIN [Concomitant]
     Dates: start: 20130524, end: 20130530
  3. AVAMYS [Concomitant]
     Dates: start: 20130726
  4. GAVISCON ADVANCE [Concomitant]
     Dates: start: 20130618
  5. MEDROXYPROGESTERONE ACETATE [Concomitant]
     Dates: start: 20130306
  6. RANITIDINE [Concomitant]
     Dates: start: 20130806

REACTIONS (1)
  - Photopsia [Recovered/Resolved]
